FAERS Safety Report 6273546-1 (Version None)
Quarter: 2009Q3

REPORT INFORMATION
  Report Type: 
  Country: None (occurrence: None)
  Receive Date: 20090720
  Receipt Date: 20090717
  Transmission Date: 20100115
  Serious: No
  Sender: FDA-Public Use
  Company Number: US-B.I. PHARMACEUTICALS,INC./RIDGEFIELD-2009-BP-04816BP

PATIENT
  Age: 51 Year
  Sex: Male
  Weight: 99 kg

DRUGS (4)
  1. MIRAPEX [Suspect]
     Indication: RESTLESS LEGS SYNDROME
  2. LIPITOR [Concomitant]
  3. TEGRETOL [Concomitant]
  4. BUPROPION [Concomitant]

REACTIONS (1)
  - NAUSEA [None]
